FAERS Safety Report 20324219 (Version 3)
Quarter: 2022Q1

REPORT INFORMATION
  Report Type: Report from Study
  Country: US (occurrence: US)
  Receive Date: 20220111
  Receipt Date: 20220310
  Transmission Date: 20220423
  Serious: Yes (Hospitalization, Other)
  Sender: FDA-Public Use
  Company Number: US-OTSUKA-2022_000630

PATIENT
  Sex: Male

DRUGS (2)
  1. CEDAZURIDINE\DECITABINE [Suspect]
     Active Substance: CEDAZURIDINE\DECITABINE
     Indication: Myelodysplastic syndrome
     Dosage: 135 MG (35-100MG BY MOUTH ONCE DAILY ON DAYS) 1-5 OF EACH 28 DAY CYCLE
     Route: 048
     Dates: start: 20211210, end: 20220221
  2. HYDROCHLOROTHIAZIDE [Concomitant]
     Active Substance: HYDROCHLOROTHIAZIDE
     Indication: Peripheral swelling
     Dosage: CUTTING IN HALF
     Route: 065

REACTIONS (6)
  - Infusion [Unknown]
  - Epistaxis [Recovered/Resolved]
  - Toothache [Unknown]
  - Stomatitis [Unknown]
  - Fatigue [Unknown]
  - Drug ineffective [Unknown]
